FAERS Safety Report 5912575-1 (Version None)
Quarter: 2008Q4

REPORT INFORMATION
  Report Type: 
  Country: None (occurrence: None)
  Receive Date: 20081006
  Receipt Date: 20080930
  Transmission Date: 20090506
  Serious: Yes (Life-Threatening, Hospitalization)
  Sender: FDA-Public Use
  Company Number: 2008-03673

PATIENT
  Age: 68 Year
  Sex: Female
  Weight: 67 kg

DRUGS (9)
  1. VELCADE [Suspect]
     Indication: MULTIPLE MYELOMA
     Dosage: 1.3 MG/M2, INTRAVENOUS
     Route: 042
     Dates: start: 20080918
  2. DEXAMETHASONE [Concomitant]
  3. QUETIAPINE FUMARATE [Concomitant]
  4. BACTRIM DS [Concomitant]
  5. CLODRONATE DISODIUM (CLODRONATE DISODIUM) [Concomitant]
  6. PAROXETINE HCL [Concomitant]
  7. VALTREX [Concomitant]
  8. ALLOPURINOL [Concomitant]
  9. GRANULOCYTE COLONY STIMULATING FACTOR (GRANULOCYTE COLONYSTIMULATING F [Concomitant]

REACTIONS (5)
  - ACUTE RESPIRATORY DISTRESS SYNDROME [None]
  - BACK PAIN [None]
  - BLOOD LACTATE DEHYDROGENASE INCREASED [None]
  - MALAISE [None]
  - NO THERAPEUTIC RESPONSE [None]
